FAERS Safety Report 15798722 (Version 2)
Quarter: 2019Q1

REPORT INFORMATION
  Report Type: Spontaneous
  Country: IL (occurrence: IL)
  Receive Date: 20190108
  Receipt Date: 20190122
  Transmission Date: 20190417
  Serious: Yes (Death, Hospitalization)
  Sender: FDA-Public Use
  Company Number: IL-PFIZER INC-2019008779

PATIENT
  Age: 54 Year
  Sex: Male

DRUGS (1)
  1. BESPONSA [Suspect]
     Active Substance: INOTUZUMAB OZOGAMICIN
     Indication: ACUTE LYMPHOCYTIC LEUKAEMIA
     Dosage: 0.8 MG/M2, UNK
     Dates: start: 20190106

REACTIONS (2)
  - Pulmonary haemorrhage [Fatal]
  - Sepsis [Fatal]
